FAERS Safety Report 4787089-5 (Version None)
Quarter: 2005Q3

REPORT INFORMATION
  Report Type: 
  Country: None (occurrence: None)
  Receive Date: 20050930
  Receipt Date: 20050920
  Transmission Date: 20060218
  Serious: Yes (Disabling)
  Sender: FDA-Public Use
  Company Number: 050920-0000753

PATIENT
  Age: 32 Year
  Sex: Female

DRUGS (4)
  1. TRANXENE [Suspect]
     Dosage: 50.00 MG; QD; PO
     Route: 048
     Dates: start: 20040201
  2. PANTOPRAZOLE SODIUM [Suspect]
     Dosage: PO
     Route: 048
  3. METHOTREXATE [Suspect]
     Dosage: 2.5 MG;QW; PO
     Route: 048
     Dates: start: 20040201
  4. PAROXETINE HYDROCHLORIDE [Suspect]
     Dosage: PO
     Route: 048

REACTIONS (2)
  - VISUAL ACUITY REDUCED [None]
  - VISUAL FIELD DEFECT [None]
